FAERS Safety Report 25306603 (Version 4)
Quarter: 2025Q3

REPORT INFORMATION
  Report Type: Spontaneous
  Country: EU (occurrence: EU)
  Receive Date: 20250513
  Receipt Date: 20250717
  Transmission Date: 20251021
  Serious: Yes (Other)
  Sender: ASTELLAS
  Company Number: EU-ASTELLAS-2025-AER-025612

PATIENT
  Age: 56 Year
  Sex: Female

DRUGS (2)
  1. VEOZAH [Suspect]
     Active Substance: FEZOLINETANT
     Indication: Menopausal symptoms
     Route: 048
     Dates: start: 20240215, end: 20250227
  2. VEOZAH [Suspect]
     Active Substance: FEZOLINETANT
     Indication: Sleep disorder

REACTIONS (4)
  - Gamma-glutamyltransferase increased [Unknown]
  - Aspartate aminotransferase increased [Recovered/Resolved]
  - Alanine aminotransferase increased [Unknown]
  - Gallbladder polyp [Unknown]

NARRATIVE: CASE EVENT DATE: 20250123
